FAERS Safety Report 9464833 (Version 1)
Quarter: 2013Q3

REPORT INFORMATION
  Report Type: Spontaneous
  Country: US (occurrence: US)
  Receive Date: 20130819
  Receipt Date: 20130819
  Transmission Date: 20140515
  Serious: No
  Sender: FDA-Public Use
  Company Number: US-009507513-1308USA008238

PATIENT
  Sex: Female

DRUGS (2)
  1. CHLOR-TRIMETON ALLERGY 4 HOUR TABLETS [Suspect]
     Indication: RHINORRHOEA
     Dosage: UNK, UNKNOWN
     Route: 048
  2. CLARITIN [Concomitant]
     Indication: PRODUCT USED FOR UNKNOWN INDICATION
     Dosage: UNK, UNKNOWN

REACTIONS (1)
  - Drug ineffective [Unknown]
